FAERS Safety Report 8175776-0 (Version None)
Quarter: 2012Q1

REPORT INFORMATION
  Report Type: 
  Country: None (occurrence: None)
  Receive Date: 20120228
  Receipt Date: 20120217
  Transmission Date: 20120608
  Serious: Yes (Hospitalization)
  Sender: FDA-Public Use
  Company Number: 2012-0934

PATIENT
  Age: 38 Year
  Sex: Female
  Weight: 83.9 kg

DRUGS (2)
  1. CABERGOLINE [Concomitant]
  2. SOMATULINE DEPOT [Suspect]
     Indication: ACROMEGALY
     Dosage: 90 MG (90 MG, ONCE), SUCUTANEOUS
     Route: 058
     Dates: start: 20120216

REACTIONS (3)
  - DYSPNOEA [None]
  - ABDOMINAL PAIN UPPER [None]
  - SOMNOLENCE [None]
